FAERS Safety Report 5841093-4 (Version None)
Quarter: 2008Q3

REPORT INFORMATION
  Report Type: 
  Country: None (occurrence: None)
  Receive Date: 20080812
  Receipt Date: 20080805
  Transmission Date: 20090109
  Serious: Yes (Hospitalization)
  Sender: FDA-Public Use
  Company Number: GB-RANBAXY-2008RR-17012

PATIENT

DRUGS (20)
  1. SIMVASTATIN [Suspect]
     Indication: BLOOD CHOLESTEROL INCREASED
     Dosage: 40 MG, UNK
     Route: 048
  2. ZITHROMAX [Suspect]
     Indication: URINARY TRACT INFECTION
     Dosage: 800 MG, UNK
  3. AMITRIPTYLINE HCL [Concomitant]
     Dosage: 50 MG, QD
  4. ASPIRIN [Concomitant]
     Dosage: 75 MG, UNK
  5. AZATHIOPRINE [Concomitant]
     Dosage: 75 MG, QD
  6. BETAHISTINE [Concomitant]
     Dosage: 16 MG, UNK
  7. CEPHALEXIN [Concomitant]
     Indication: PROPHYLAXIS
     Dosage: 250 MG, QD
  8. CYCLOSPORINE [Concomitant]
     Dosage: 100 MG, QD
  9. CYCLOSPORINE [Concomitant]
     Dosage: 75 MG, QD
  10. DIAZEPAM [Concomitant]
     Dosage: 8 MG, UNK
  11. FLUDROCORTISONE ACETATE [Concomitant]
     Dosage: 100 UG, QD
  12. FOLIC ACID [Concomitant]
     Dosage: 5 MG, QD
  13. INSULINE GLARGINE [Concomitant]
     Dosage: 20 IU, QD
  14. LANSOPRAZOLE [Concomitant]
     Dosage: 30 MG, QD
  15. METOPROLOL SUCCINATE [Concomitant]
     Dosage: 50 MG, QD
  16. MOVICOL [Concomitant]
     Dosage: 1 DF, TID
  17. NOVORAPID [Concomitant]
     Dosage: UNK
  18. PREDNISOLONE [Concomitant]
     Dosage: 5 MG, UNK
  19. QUININE SULPHATE [Concomitant]
     Dosage: 300 MG, QD
  20. SODIUM BICARBONATE [Concomitant]
     Dosage: 500 MG, BID

REACTIONS (2)
  - DRUG INTERACTION [None]
  - RHABDOMYOLYSIS [None]
